FAERS Safety Report 5389099-6 (Version None)
Quarter: 2007Q3

REPORT INFORMATION
  Report Type: 
  Country: None (occurrence: None)
  Receive Date: 20070717
  Receipt Date: 20070712
  Transmission Date: 20080115
  Serious: Yes (Other)
  Sender: FDA-Public Use
  Company Number: DE-JNJFOC-20070702810

PATIENT
  Age: 43 Year
  Sex: Female

DRUGS (3)
  1. RISPERDAL [Suspect]
     Indication: SCHIZOPHRENIA
  2. VALPROATE SODIUM [Concomitant]
  3. EUTHYROX [Concomitant]

REACTIONS (1)
  - VISUAL FIELD DEFECT [None]
